FAERS Safety Report 7875734-7 (Version None)
Quarter: 2011Q4

REPORT INFORMATION
  Report Type: 
  Country: None (occurrence: None)
  Receive Date: 20111031
  Receipt Date: 20111024
  Transmission Date: 20120403
  Serious: Yes (Hospitalization, Other)
  Sender: FDA-Public Use
  Company Number: US-ABBOTT-11P-163-0868012-00

PATIENT
  Sex: Male
  Weight: 63.56 kg

DRUGS (2)
  1. HUMIRA [Suspect]
     Indication: CROHN'S DISEASE
     Dates: end: 20100101
  2. CIMZIA [Suspect]
     Indication: CROHN'S DISEASE
     Dates: end: 20110101

REACTIONS (5)
  - FATIGUE [None]
  - DIARRHOEA [None]
  - ABDOMINAL PAIN [None]
  - PSYCHOTIC DISORDER [None]
  - PARANOIA [None]
